FAERS Safety Report 5275488-7 (Version None)
Quarter: 2007Q1

REPORT INFORMATION
  Report Type: 
  Country: None (occurrence: None)
  Receive Date: 20061213
  Receipt Date: 20050811
  Transmission Date: 20070707
  Serious: No
  Sender: FDA-Public Use
  Company Number: 2005UW11981

PATIENT
  Age: 49 Year
  Sex: Female

DRUGS (10)
  1. SEROQUEL [Suspect]
     Dates: start: 20040801
  2. SEROQUEL [Suspect]
     Dosage: 100 MG HS PO
     Route: 048
     Dates: start: 20050301
  3. ABILIFY [Concomitant]
  4. PROZAC [Concomitant]
  5. LIBRIIUM [Concomitant]
  6. LEXAPRO [Concomitant]
  7. HALDOL [Concomitant]
  8. ARTANE [Concomitant]
  9. WELLBUTRIN [Concomitant]
  10. TRAZODONE HCL [Concomitant]

REACTIONS (1)
  - TARDIVE DYSKINESIA [None]
